FAERS Safety Report 10572766 (Version 1)
Quarter: 2014Q4

REPORT INFORMATION
  Report Type: Spontaneous
  Country: US (occurrence: None)
  Receive Date: 20141107
  Receipt Date: 20141107
  Transmission Date: 20150529
  Serious: No
  Sender: FDA-Public Use
  Company Number: None

PATIENT
  Age: 52 Year
  Sex: Male

DRUGS (1)
  1. EXJADE [Suspect]
     Active Substance: DEFERASIROX
     Indication: IRON OVERLOAD
     Route: 048
     Dates: start: 20141014

REACTIONS (4)
  - Pain in extremity [None]
  - Arthropod bite [None]
  - Scratch [None]
  - Balance disorder [None]

NARRATIVE: CASE EVENT DATE: 20141020
